FAERS Safety Report 21457110 (Version 1)
Quarter: 2022Q4

REPORT INFORMATION
  Report Type: Spontaneous
  Country: ID (occurrence: ID)
  Receive Date: 20221014
  Receipt Date: 20221014
  Transmission Date: 20230113
  Serious: Yes (Hospitalization, Other)
  Sender: FDA-Public Use
  Company Number: ID-MACLEODS PHARMACEUTICALS US LTD-MAC2022037769

PATIENT

DRUGS (3)
  1. CLOPIDOGREL [Suspect]
     Active Substance: CLOPIDOGREL BISULFATE
     Indication: Acute coronary syndrome
     Dosage: 300 MILLIGRAM (LOADING DOSE)
     Route: 065
  2. ASPIRIN [Suspect]
     Active Substance: ASPIRIN
     Indication: Acute coronary syndrome
     Dosage: 300 MILLIGRAM (LOADING DOSE)
     Route: 065
  3. ENOXAPARIN [Suspect]
     Active Substance: ENOXAPARIN
     Indication: Acute coronary syndrome
     Dosage: 60 MILLIGRAM, BID (12 HOUR)
     Route: 065

REACTIONS (3)
  - Compartment syndrome [Recovering/Resolving]
  - Incorrect dose administered [Recovered/Resolved]
  - Haemorrhage [Unknown]
